FAERS Safety Report 23045458 (Version 2)
Quarter: 2025Q1

REPORT INFORMATION
  Report Type: Spontaneous
  Country: US (occurrence: US)
  Receive Date: 20231009
  Receipt Date: 20250130
  Transmission Date: 20250409
  Serious: No
  Sender: CSL BEHRING
  Company Number: US-BEH-2023163995

PATIENT
  Age: 60 Year
  Sex: Female

DRUGS (34)
  1. HIZENTRA [Suspect]
     Active Substance: HUMAN IMMUNOGLOBULIN G
     Indication: Dermatomyositis
     Dosage: 24 GRAM, BIW
     Route: 058
     Dates: start: 20210130
  2. HIZENTRA [Suspect]
     Active Substance: HUMAN IMMUNOGLOBULIN G
     Indication: Immunodeficiency
     Dosage: 24 G, BIW
     Route: 058
     Dates: start: 20240924
  3. AIMOVIG [Concomitant]
     Active Substance: ERENUMAB-AOOE
  4. ARNUITY ELLIPTA [Concomitant]
     Active Substance: FLUTICASONE FUROATE
  5. BUPROPION [Concomitant]
     Active Substance: BUPROPION
  6. CITALOPRAM [Concomitant]
     Active Substance: CITALOPRAM
  7. CREON [Concomitant]
     Active Substance: PANCRELIPASE AMYLASE\PANCRELIPASE LIPASE\PANCRELIPASE PROTEASE
     Route: 065
  8. CREON [Concomitant]
     Active Substance: PANCRELIPASE AMYLASE\PANCRELIPASE LIPASE\PANCRELIPASE PROTEASE
     Route: 065
  9. DICYCLOMINE [Concomitant]
     Active Substance: DICYCLOMINE HYDROCHLORIDE
  10. EPINEPHRINE [Concomitant]
     Active Substance: EPINEPHRINE
  11. ERYTHROMYCIN [Concomitant]
     Active Substance: ERYTHROMYCIN
  12. ESTRADIOL [Concomitant]
     Active Substance: ESTRADIOL
  13. FLECAINIDE [Concomitant]
     Active Substance: FLECAINIDE
  14. HYDROCORT [HYDROCORTISONE] [Concomitant]
  15. HYDROCORT [HYDROCORTISONE] [Concomitant]
  16. INCRUSE ELLIPTA [Concomitant]
     Active Substance: UMECLIDINIUM BROMIDE
  17. LEUCOVORIN CALCIUM [Concomitant]
     Active Substance: LEUCOVORIN CALCIUM
  18. LEVOTHYROXINE [Concomitant]
     Active Substance: LEVOTHYROXINE
  19. METHOTREXATE [Concomitant]
     Active Substance: METHOTREXATE
  20. METHYLPREDNISOLONE [Concomitant]
     Active Substance: METHYLPREDNISOLONE
  21. METOPROLOL SUCCINATE [Concomitant]
     Active Substance: METOPROLOL SUCCINATE
     Route: 065
  22. METOPROLOL SUCCINATE [Concomitant]
     Active Substance: METOPROLOL SUCCINATE
     Route: 065
  23. MONTELUKAST [Concomitant]
     Active Substance: MONTELUKAST
  24. ONDANSETRON [Concomitant]
     Active Substance: ONDANSETRON
  25. PIMECROLIMUS [Concomitant]
     Active Substance: PIMECROLIMUS
  26. PREDNISONE [Concomitant]
     Active Substance: PREDNISONE
  27. PROMETHAZINE [Concomitant]
     Active Substance: PROMETHAZINE HYDROCHLORIDE
  28. RIZATRIPTAN [Concomitant]
     Active Substance: RIZATRIPTAN
  29. SUPREP BOWEL PREP [Concomitant]
     Active Substance: MAGNESIUM SULFATE\POTASSIUM SULFATE\SODIUM SULFATE
  30. TACROLIMUS [Concomitant]
     Active Substance: TACROLIMUS
  31. TOPIRAMATE [Concomitant]
     Active Substance: TOPIRAMATE
  32. VALSARTAN [Concomitant]
     Active Substance: VALSARTAN
  33. VENTOLIN HFA [Concomitant]
     Active Substance: ALBUTEROL SULFATE
  34. XARELTO [Concomitant]
     Active Substance: RIVAROXABAN

REACTIONS (6)
  - Fatigue [Recovered/Resolved]
  - Illness [Recovered/Resolved]
  - Illness [Not Recovered/Not Resolved]
  - Product dose omission issue [Unknown]
  - Off label use [Unknown]
  - Therapy interrupted [Unknown]

NARRATIVE: CASE EVENT DATE: 20230802
